FAERS Safety Report 5043598-5 (Version None)
Quarter: 2006Q2

REPORT INFORMATION
  Report Type: 
  Country: None (occurrence: None)
  Receive Date: 20060628
  Receipt Date: 20060622
  Transmission Date: 20061013
  Serious: Yes (Congenital Anomaly)
  Sender: FDA-Public Use
  Company Number: 54756/ 463

PATIENT
  Sex: Male

DRUGS (3)
  1. LEVONORGESTREL [Suspect]
     Indication: POST COITAL CONTRACEPTION
     Dosage: TRANSPLACENTAL
     Route: 064
     Dates: start: 20040101, end: 20040101
  2. PEPTAC (SODIUM ALGINATE, SODIUM BICARBONATE) [Concomitant]
  3. GAVISCON [Concomitant]

REACTIONS (6)
  - CRYPTORCHISM [None]
  - DRUG EXPOSURE DURING PREGNANCY [None]
  - HERNIA CONGENITAL [None]
  - INGUINAL HERNIA, OBSTRUCTIVE [None]
  - PREGNANCY AFTER POST COITAL CONTRACEPTION [None]
  - VENTRICULAR SEPTAL DEFECT [None]
